FAERS Safety Report 5247560-9 (Version None)
Quarter: 2007Q1

REPORT INFORMATION
  Report Type: 
  Country: None (occurrence: None)
  Receive Date: 20070227
  Receipt Date: 20070214
  Transmission Date: 20070707
  Serious: Yes (Other)
  Sender: FDA-Public Use
  Company Number: PHRM2007FR00716

PATIENT
  Sex: Female

DRUGS (3)
  1. CLOZAPINE [Suspect]
     Dosage: 200 MG, QD
     Route: 048
     Dates: start: 20050501
  2. NUREFLEX [Suspect]
     Indication: ACUTE TONSILLITIS
     Dosage: 1 TO 3 DF/DAY
     Route: 048
     Dates: end: 20070120
  3. DEPAKOTE [Concomitant]
     Route: 048

REACTIONS (3)
  - ACUTE TONSILLITIS [None]
  - DRUG INTERACTION [None]
  - NEUTROPENIA [None]
